FAERS Safety Report 7168944-8 (Version None)
Quarter: 2010Q4

REPORT INFORMATION
  Report Type: 
  Country: None (occurrence: None)
  Receive Date: 20101216
  Receipt Date: 20100125
  Transmission Date: 20110411
  Serious: No
  Sender: FDA-Public Use
  Company Number: US-AMGEN-KDL388394

PATIENT

DRUGS (9)
  1. ENBREL [Suspect]
     Indication: RHEUMATOID ARTHRITIS
     Dosage: 50 MG, QWK
     Route: 058
     Dates: start: 20080825
  2. METHOTREXATE [Concomitant]
     Dosage: 15 MG, QWK
     Route: 048
  3. MELOXICAM [Concomitant]
     Dosage: 15 G, UNK
  4. LOPERAMIDE [Concomitant]
  5. FOLIC ACID [Concomitant]
     Dosage: 1 MG, BID
  6. AMLODIPINE BESYLATE [Concomitant]
     Dosage: 5 MG, UNK
  7. TOCOPHEROL CONCENTRATE CAP [Concomitant]
  8. SELENIUM [Concomitant]
     Dosage: UNK UNK, UNK
     Dates: start: 19990101
  9. LISINOPRIL [Concomitant]
     Dosage: 10 MG, UNK
     Dates: start: 20090825

REACTIONS (1)
  - TOOTH FRACTURE [None]
